FAERS Safety Report 6237813-X (Version None)
Quarter: 2009Q2

REPORT INFORMATION
  Report Type: 
  Country: None (occurrence: None)
  Receive Date: 20090618
  Receipt Date: 20090609
  Transmission Date: 20091009
  Serious: Yes (Disabling)
  Sender: FDA-Public Use
  Company Number: APP200900324

PATIENT
  Sex: Male

DRUGS (4)
  1. BUPIVACAINE HYDROCHLORIDE AND EPINEPHRINE [Suspect]
     Indication: MUSCULOSKELETAL PAIN
     Dosage: CONTINUES VIA PUMP, INTRA-ARTICULAR, 30 ML X 11 CONTINUOUS VIA PUMPS, INTRA-ARTICULAR
     Route: 014
     Dates: start: 20030407
  2. BUPIVACAINE HYDROCHLORIDE AND EPINEPHRINE [Suspect]
     Indication: MUSCULOSKELETAL PAIN
     Dosage: CONTINUES VIA PUMP, INTRA-ARTICULAR, 30 ML X 11 CONTINUOUS VIA PUMPS, INTRA-ARTICULAR
     Route: 014
     Dates: start: 20030731
  3. I-FLOW PAIN PUMP [Suspect]
     Indication: MUSCULOSKELETAL PAIN
     Dates: start: 20030407
  4. STRYKER PAIN PUMP [Suspect]
     Indication: MUSCULOSKELETAL PAIN
     Dates: start: 20030731

REACTIONS (3)
  - CHONDROLYSIS [None]
  - MUSCULOSKELETAL PAIN [None]
  - OSTEOARTHRITIS [None]
